FAERS Safety Report 8229591-X (Version None)
Quarter: 2012Q1

REPORT INFORMATION
  Report Type: 
  Country: None (occurrence: None)
  Receive Date: 20120322
  Receipt Date: 20120307
  Transmission Date: 20120608
  Serious: Yes (Hospitalization)
  Sender: FDA-Public Use
  Company Number: PHHY2011JP72486

PATIENT
  Sex: Male
  Weight: 19.7 kg

DRUGS (43)
  1. PROGRAF [Suspect]
     Dosage: 5.5 MG, UNK
     Route: 048
     Dates: start: 20091124, end: 20091124
  2. BIO THREE [Concomitant]
     Indication: DIARRHOEA
     Dosage: 1 G, UNK
     Route: 048
     Dates: start: 20100225, end: 20100304
  3. COTRIM [Concomitant]
     Indication: PNEUMOCYSTIS JIROVECI PNEUMONIA
     Dosage: 0.5 DF, UNK
     Route: 048
     Dates: start: 20100715, end: 20101015
  4. PREDNISOLONE [Suspect]
     Dosage: 25 MG, UNK
     Route: 042
     Dates: start: 20091109, end: 20091109
  5. PREDNISOLONE [Suspect]
     Dosage: 20 MG, UNK
     Route: 048
     Dates: start: 20091110, end: 20091117
  6. MYCOPHENOLATE MOFETIL (CELLCEPT) [Suspect]
     Indication: RENAL TRANSPLANT
     Dosage: 500 MG, UNK
     Route: 048
     Dates: start: 20091105
  7. RELENZA [Concomitant]
     Dosage: 4 DF, UNK
     Dates: start: 20091117, end: 20091121
  8. PROGRAF [Suspect]
     Dosage: 5 MG, UNK
     Route: 048
     Dates: start: 20091125, end: 20091129
  9. PROGRAF [Suspect]
     Dosage: 7 MG, UNK
     Route: 048
     Dates: start: 20091201, end: 20091209
  10. PROGRAF [Suspect]
     Dosage: 6 MG, UNK
     Route: 048
     Dates: start: 20100212, end: 20100714
  11. ASVERIN [Concomitant]
     Indication: UPPER RESPIRATORY TRACT INFECTION
     Dosage: 0.5 G, UNK
     Route: 048
     Dates: start: 20100204, end: 20100211
  12. FLOMOX [Concomitant]
     Indication: TOOTH EXTRACTION
     Dosage: 180 MG, UNK
     Route: 048
     Dates: start: 20100225, end: 20100329
  13. SIMULECT [Suspect]
     Dosage: 10 MG, UNK
     Route: 042
     Dates: start: 20091104, end: 20091104
  14. SIMULECT [Suspect]
     Dosage: 10 MG, UNK
     Route: 042
     Dates: start: 20091108, end: 20091108
  15. PREDNISOLONE [Suspect]
     Dosage: 30 MG, UNK
     Route: 048
     Dates: start: 20091108, end: 20091108
  16. PREDNISOLONE [Suspect]
     Dosage: 10 MG, UNK
     Route: 048
     Dates: start: 20091125, end: 20091206
  17. PREDNISOLONE [Suspect]
     Dosage: 7.5 MG, UNK
     Route: 048
     Dates: start: 20091217
  18. GANCICLOVIR [Concomitant]
     Indication: PNEUMONIA CYTOMEGALOVIRAL
     Dosage: 200 MG, UNK
     Route: 042
     Dates: start: 20091117, end: 20091118
  19. AMPICILLIN [Concomitant]
     Indication: BIOPSY KIDNEY
     Dosage: 2000 MG, UNK
     Route: 042
     Dates: start: 20091201, end: 20091201
  20. ASTRIC [Concomitant]
     Indication: ORAL HERPES
     Dosage: 1 G, UNK
     Route: 048
     Dates: start: 20100208, end: 20100213
  21. PROGRAF [Suspect]
     Dosage: 6 MG, UNK
     Route: 048
     Dates: start: 20091106, end: 20091123
  22. PROGRAF [Suspect]
     Dosage: 8 MG, UNK
     Route: 048
     Dates: start: 20091217, end: 20100208
  23. PREDNISOLONE [Suspect]
     Indication: RENAL TRANSPLANT
     Dosage: 40 MG, UNK
     Route: 042
     Dates: start: 20091104, end: 20091104
  24. PREDNISOLONE [Suspect]
     Dosage: 15 MG, UNK
     Route: 048
     Dates: start: 20091118, end: 20091124
  25. MUCODYNE [Concomitant]
     Indication: UPPER RESPIRATORY TRACT INFECTION
     Dosage: 1.5 G, UNK
     Route: 048
     Dates: start: 20100204, end: 20100211
  26. PROGRAF [Suspect]
     Indication: RENAL TRANSPLANT
     Dosage: 1.5 MG, UNK
     Route: 042
     Dates: start: 20091104, end: 20091105
  27. PROGRAF [Suspect]
     Dosage: 6 MG, UNK
     Route: 048
     Dates: start: 20091130, end: 20091130
  28. PROGRAF [Suspect]
     Dosage: 5 MG, UNK
     Route: 048
     Dates: start: 20100209, end: 20100211
  29. PROGRAF [Suspect]
     Dosage: 6.5 MG, UNK
     Route: 048
     Dates: start: 20100715, end: 20100825
  30. PROGRAF [Suspect]
     Dosage: 6 MG, UNK
     Route: 048
     Dates: start: 20100826
  31. ZOVIRAX [Concomitant]
     Indication: ORAL HERPES
     Dosage: 300 MG, UNK
     Route: 042
     Dates: start: 20091107, end: 20091109
  32. LASIX [Concomitant]
     Indication: FLUID RETENTION
     Dosage: 10 MG, UNK
     Route: 042
  33. PENTAZOCINE LACTATE [Concomitant]
     Indication: ANALGESIC THERAPY
     Dosage: 15 MG, UNK
     Route: 042
     Dates: start: 20001201, end: 20091201
  34. PREDNISOLONE [Suspect]
     Dosage: 50 MG, UNK
     Route: 042
     Dates: start: 20091105, end: 20091107
  35. LANSOPRAZOLE [Concomitant]
     Indication: PROPHYLAXIS
     Dosage: 15 MG, UNK
     Route: 042
     Dates: start: 20091104, end: 20091106
  36. OMEPRAZOLE [Concomitant]
     Indication: PROPHYLAXIS
     Dosage: 20 MG, UNK
     Route: 048
     Dates: start: 20091107, end: 20091124
  37. NICARDIPINE HCL [Concomitant]
     Indication: HYPERTENSION
     Dosage: 24 MG, UNK
     Route: 042
  38. IONAL SODIUM [Concomitant]
     Indication: BIOPSY KIDNEY
     Dosage: 200 MG, UNK
     Route: 042
     Dates: start: 20091201, end: 20091201
  39. PROGRAF [Suspect]
     Dosage: 7.5 MG, UNK
     Route: 048
     Dates: start: 20091210, end: 20091216
  40. CEFAZOLIN [Concomitant]
     Indication: INFECTION PROPHYLAXIS
     Dosage: 2100 MG, UNK
     Route: 042
     Dates: start: 20091104, end: 20091109
  41. NORVASC [Concomitant]
     Dosage: 2.5 MG, UNK
     Route: 048
     Dates: start: 20091111, end: 20091117
  42. CEFMETAZON [Concomitant]
     Indication: BACTERIAL INFECTION
     Dosage: 2100 MG, UNK
     Route: 042
     Dates: start: 20091118, end: 20091120
  43. HIRUDOID [Concomitant]
     Indication: ASTEATOSIS
     Dosage: UNK UKN, UNK
     Dates: start: 20091217, end: 20091224

REACTIONS (7)
  - FLUID RETENTION [None]
  - DIARRHOEA [None]
  - BACTERIAL INFECTION [None]
  - ORAL HERPES [None]
  - UPPER RESPIRATORY TRACT INFLAMMATION [None]
  - ASTEATOSIS [None]
  - HYPERTENSION [None]
